FAERS Safety Report 6452842-9 (Version None)
Quarter: 2009Q4

REPORT INFORMATION
  Report Type: 
  Country: None (occurrence: None)
  Receive Date: 20091116
  Receipt Date: 20091102
  Transmission Date: 20100525
  Serious: Yes (Other)
  Sender: FDA-Public Use
  Company Number: 2009246686

PATIENT
  Age: 84 Year
  Sex: Male

DRUGS (7)
  1. FRAGMIN [Suspect]
     Indication: THROMBOSIS PROPHYLAXIS
     Dosage: 5000 IU, 1X/DAY, SUBCUTANEOUS
     Route: 058
     Dates: start: 20090608, end: 20090630
  2. XATRAL (ALFUZOSIN) [Concomitant]
  3. LANSOPRAZOLE [Concomitant]
  4. DEBRIDAT ENZIMATICO (BROMELAINS, DEHYDROCHOLIC ACID, DIMETICONE, PANCR [Concomitant]
  5. LASIX [Concomitant]
  6. LUVION (CANRENOIC ACID) [Concomitant]
  7. PLASIL (METOCLOPRAMIDE HYDROCHLORIDE) [Concomitant]

REACTIONS (1)
  - PANCYTOPENIA [None]
